FAERS Safety Report 18563810 (Version 1)
Quarter: 2020Q4

REPORT INFORMATION
  Report Type: Spontaneous
  Country: US (occurrence: US)
  Receive Date: 20201201
  Receipt Date: 20201201
  Transmission Date: 20210114
  Serious: No
  Sender: FDA-Public Use
  Company Number: US-ELI_LILLY_AND_COMPANY-US202011008596

PATIENT

DRUGS (1)
  1. EMGALITY [Suspect]
     Active Substance: GALCANEZUMAB-GNLM
     Indication: MIGRAINE
     Dosage: UNK UNK,SINGLE
     Route: 065
     Dates: start: 20201112

REACTIONS (5)
  - Headache [Unknown]
  - Visual impairment [Unknown]
  - Trismus [Unknown]
  - Pain in jaw [Unknown]
  - Muscle spasms [Unknown]

NARRATIVE: CASE EVENT DATE: 202011
